FAERS Safety Report 18878267 (Version 1)
Quarter: 2021Q1

REPORT INFORMATION
  Report Type: Spontaneous
  Country: DE (occurrence: DE)
  Receive Date: 20210211
  Receipt Date: 20210211
  Transmission Date: 20210420
  Serious: Yes (Other)
  Sender: FDA-Public Use
  Company Number: DE-GRANULES-DE-2021GRALIT00124

PATIENT
  Age: 6 Month
  Sex: Male

DRUGS (2)
  1. METFORMIN HYDROCHLORIDE. [Suspect]
     Active Substance: METFORMIN HYDROCHLORIDE
     Indication: DONOHUE SYNDROME
     Route: 065
  2. METFORMIN HYDROCHLORIDE. [Suspect]
     Active Substance: METFORMIN HYDROCHLORIDE
     Indication: BLOOD GLUCOSE

REACTIONS (7)
  - Haematuria [Recovered/Resolved]
  - Hepatic failure [Recovered/Resolved]
  - Haematochezia [Recovered/Resolved]
  - Product use in unapproved indication [Unknown]
  - Skin haemorrhage [Recovered/Resolved]
  - Drug ineffective [Unknown]
  - Product use issue [Unknown]
